FAERS Safety Report 5661821-0 (Version None)
Quarter: 2008Q1

REPORT INFORMATION
  Report Type: 
  Country: None (occurrence: None)
  Receive Date: 20080312
  Receipt Date: 20080218
  Transmission Date: 20080703
  Serious: Yes (Hospitalization, Disabling, Other)
  Sender: FDA-Public Use
  Company Number: TR-MERCK-0802USA04213

PATIENT
  Age: 52 Year
  Sex: Female

DRUGS (2)
  1. DECADRON [Suspect]
     Indication: MENINGITIS
     Route: 048
  2. DECADRON [Suspect]
     Route: 048

REACTIONS (18)
  - CEREBELLAR INFARCTION [None]
  - CEREBRAL VENTRICLE DILATATION [None]
  - DEPRESSED LEVEL OF CONSCIOUSNESS [None]
  - DIABETIC KETOACIDOSIS [None]
  - DYSPHAGIA [None]
  - FATIGUE [None]
  - GASTROSTOMY [None]
  - HEMIPARESIS [None]
  - MOBILITY DECREASED [None]
  - MUSCLE RIGIDITY [None]
  - PACHYMENINGITIS [None]
  - PARESIS CRANIAL NERVE [None]
  - PYREXIA [None]
  - QUADRIPARESIS [None]
  - SOMNOLENCE [None]
  - TRACHEAL DISORDER [None]
  - VOCAL CORD PARALYSIS [None]
  - VOMITING [None]
